FAERS Safety Report 4819334-1 (Version None)
Quarter: 2005Q4

REPORT INFORMATION
  Report Type: 
  Country: None (occurrence: None)
  Receive Date: 20051103
  Receipt Date: 20050726
  Transmission Date: 20060501
  Serious: Yes (Other)
  Sender: FDA-Public Use
  Company Number: 200516001US

PATIENT
  Sex: Female
  Weight: 86 kg

DRUGS (7)
  1. APIDRA [Suspect]
     Indication: DIABETES MELLITUS INSULIN-DEPENDENT
     Dosage: DOSE: PUMP
     Dates: start: 20050616
  2. LEVOTHROID [Concomitant]
     Indication: HYPOTHYROIDISM
     Dosage: DOSE: NOT PROVIDED
  3. ACCUPRIL [Concomitant]
     Indication: DIABETES MELLITUS
     Dosage: DOSE: NOT PROVIDED
  4. ZOLOFT [Concomitant]
     Indication: ANXIETY
     Dosage: DOSE: NOT PROVIDED
  5. ZOLOFT [Concomitant]
     Indication: DEPRESSION
     Dosage: DOSE: NOT PROVIDED
  6. WELLBUTRIN [Concomitant]
     Indication: ANXIETY
     Dosage: DOSE: NOT PROVIDED
  7. WELLBUTRIN [Concomitant]
     Indication: DEPRESSION
     Dosage: DOSE: NOT PROVIDED

REACTIONS (4)
  - BLOOD GLUCOSE INCREASED [None]
  - CHEST PAIN [None]
  - GASTROOESOPHAGEAL REFLUX DISEASE [None]
  - REGURGITATION OF FOOD [None]
